FAERS Safety Report 7093723-X (Version None)
Quarter: 2010Q4

REPORT INFORMATION
  Report Type: 
  Country: None (occurrence: None)
  Receive Date: 20101102
  Receipt Date: 20101020
  Transmission Date: 20110411
  Serious: Yes (Hospitalization)
  Sender: FDA-Public Use
  Company Number: WAES 1010USA02690

PATIENT
  Age: 67 Year
  Sex: Male
  Weight: 120.2032 kg

DRUGS (14)
  1. ZOCOR [Suspect]
     Indication: ACUTE CORONARY SYNDROME
     Dosage: PO
     Route: 048
     Dates: start: 20070525, end: 20101027
  2. PLACEBO [Suspect]
     Indication: ACUTE CORONARY SYNDROME
     Dosage: PO
     Route: 048
     Dates: start: 20070525, end: 20101027
  3. PLACEBO [Suspect]
     Indication: ACUTE CORONARY SYNDROME
     Dosage: PO
     Route: 048
     Dates: start: 20070525, end: 20101012
  4. AVODART [Concomitant]
  5. ASPIRIN [Concomitant]
  6. FLOMAX [Concomitant]
  7. IMDUR [Concomitant]
  8. K-DUR [Concomitant]
  9. PLAVIX [Concomitant]
  10. TOPROL-XL [Concomitant]
  11. HYDROCHLOROTHIAZIDE [Concomitant]
  12. LISINOPRIL [Concomitant]
  13. METFORMIN [Concomitant]
  14. OMEGA-3 MARINE TRIGLYCERIDES [Concomitant]

REACTIONS (1)
  - ADENOCARCINOMA PANCREAS [None]
